FAERS Safety Report 9143679 (Version 1)
Quarter: 2013Q1

REPORT INFORMATION
  Report Type: Report from Study
  Country: KR (occurrence: KR)
  Receive Date: 20130306
  Receipt Date: 20130306
  Transmission Date: 20140127
  Serious: Yes (Hospitalization)
  Sender: FDA-Public Use
  Company Number: KR-009507513-1303KOR001132

PATIENT
  Age: 61 Year
  Sex: Female
  Weight: 60 kg

DRUGS (15)
  1. DEXAMETHASONE [Suspect]
     Indication: PLASMA CELL MYELOMA
     Dosage: DAY 1, 2, 4, 5, 8, 9, 11, 12 EVERY 21 DAYS
     Route: 048
     Dates: start: 20121204, end: 20130104
  2. DEXAMETHASONE [Suspect]
     Dosage: AY 1, 2, 4, 5, 8, 9, 11, 12 EVERY 21 DAYS
     Route: 048
     Dates: start: 20130121
  3. BORTEZOMIB [Suspect]
     Indication: PLASMA CELL MYELOMA
     Dosage: DAY 1, 4, 8 AND 11 EVERY 21 DAYS
     Route: 058
     Dates: start: 20121204, end: 20130103
  4. BORTEZOMIB [Suspect]
     Dosage: DAY 1, 4, 8 AND 11 EVERY 21 DAYS
     Route: 058
     Dates: start: 20130121
  5. STUDY DRUG (UNSPECIFIED) [Suspect]
     Indication: PLASMA CELL MYELOMA
     Dosage: UNK
     Dates: start: 20121204, end: 20121224
  6. STUDY DRUG (UNSPECIFIED) [Suspect]
     Dosage: UNK
     Dates: start: 20130121
  7. ACETAMINOPHEN (+) TRAMADOL HYDROCHLORIDE [Concomitant]
     Indication: BONE PAIN
     Dosage: UNK
     Dates: start: 20121116, end: 20130110
  8. CIPROFLOXACIN [Concomitant]
     Indication: INFECTION PROPHYLAXIS
     Dosage: UNK
     Dates: start: 20121204
  9. FLUCONAZOLE [Concomitant]
     Indication: INFECTION PROPHYLAXIS
     Dosage: UNK
     Dates: start: 20121204
  10. INSULIN, PROTAMINE ZINC [Concomitant]
     Indication: DIABETES MELLITUS
     Dosage: UNK
     Dates: start: 20121205, end: 20130104
  11. MAGNESIUM OXIDE [Concomitant]
     Indication: CONSTIPATION
     Dosage: UNK
     Dates: start: 20121214
  12. MEGESTROL ACETATE [Concomitant]
     Indication: DECREASED APPETITE
     Dosage: UNK
     Dates: start: 20121224, end: 20130111
  13. ORNITHINE [Concomitant]
     Indication: DECREASED APPETITE
     Dosage: UNK
     Dates: start: 20121231, end: 20130103
  14. GABAPENTIN [Concomitant]
     Indication: NEUROPATHY PERIPHERAL
     Dosage: UNK
     Dates: start: 20130103, end: 20130110
  15. PROCTOSEDYL (BENZOCAINE (+) BUTAMBEN (+) ESCULIN (+) FRAMYCETIN SULFAT [Concomitant]
     Indication: HAEMORRHOIDS
     Dosage: UNK
     Dates: start: 20130103, end: 20130103

REACTIONS (2)
  - Decreased appetite [Recovered/Resolved]
  - Peripheral sensory neuropathy [Recovering/Resolving]
